FAERS Safety Report 4844206-6 (Version None)
Quarter: 2005Q4

REPORT INFORMATION
  Report Type: 
  Country: None (occurrence: None)
  Receive Date: 20051202
  Receipt Date: 20051128
  Transmission Date: 20060501
  Serious: Yes (Hospitalization)
  Sender: FDA-Public Use
  Company Number: US-GLAXOSMITHKLINE-A0583660A

PATIENT
  Age: 48 Year
  Sex: Female

DRUGS (3)
  1. HYCAMTIN [Suspect]
     Route: 042
     Dates: start: 20050808
  2. MILK OF MAGNESIA TAB [Suspect]
  3. DARVOCET [Concomitant]

REACTIONS (7)
  - ABDOMINAL PAIN [None]
  - BACK PAIN [None]
  - CHEST PAIN [None]
  - CONSTIPATION [None]
  - MASTICATION DISORDER [None]
  - NAUSEA [None]
  - VOMITING PROJECTILE [None]
